FAERS Safety Report 10547214 (Version 3)
Quarter: 2014Q4

REPORT INFORMATION
  Report Type: Spontaneous
  Country: CN (occurrence: CN)
  Receive Date: 20141027
  Receipt Date: 20141128
  Transmission Date: 20150529
  Serious: Yes (Life-Threatening, Other)
  Sender: FDA-Public Use
  Company Number: CN-JNJFOC-20141012947

PATIENT
  Age: 6 Month
  Sex: Male
  Weight: 9 kg

DRUGS (4)
  1. CEFIXIME. [Suspect]
     Active Substance: CEFIXIME
     Indication: INFECTION
     Route: 048
     Dates: start: 20140416, end: 20140416
  2. MONTMORILLONITE [Suspect]
     Active Substance: MONTMORILLONITE
     Indication: PROPHYLAXIS
     Route: 048
     Dates: start: 20140416, end: 20140416
  3. PEDIATRIC PARACETAMOL [Suspect]
     Active Substance: ACETAMINOPHEN
     Indication: PYREXIA
     Route: 048
     Dates: start: 20140416, end: 20140416
  4. INFANTS TYLENOL [Suspect]
     Active Substance: ACETAMINOPHEN
     Indication: PYREXIA
     Route: 048
     Dates: start: 20140416, end: 20140416

REACTIONS (1)
  - Anaphylactoid reaction [Recovered/Resolved]

NARRATIVE: CASE EVENT DATE: 20140416
